FAERS Safety Report 6015974-5 (Version None)
Quarter: 2008Q4

REPORT INFORMATION
  Report Type: 
  Country: None (occurrence: None)
  Receive Date: 20081219
  Receipt Date: 20081219
  Transmission Date: 20090506
  Serious: No
  Sender: FDA-Public Use
  Company Number: None

PATIENT

DRUGS (1)
  1. HYDROCODONE BITARTRATE + ACETAMINOPHEN [Suspect]

REACTIONS (6)
  - DEAFNESS UNILATERAL [None]
  - DIZZINESS [None]
  - GAIT DISTURBANCE [None]
  - HYPOACUSIS [None]
  - HYPOAESTHESIA [None]
  - MIDDLE EAR DISORDER [None]
